FAERS Safety Report 20781721 (Version 1)
Quarter: 2022Q2

REPORT INFORMATION
  Report Type: Spontaneous
  Country: US (occurrence: US)
  Receive Date: 20220504
  Receipt Date: 20220504
  Transmission Date: 20220721
  Serious: No
  Sender: FDA-Public Use
  Company Number: US-BRISTOL-MYERS SQUIBB COMPANY-2022-017253

PATIENT
  Age: 68 Year
  Sex: Female
  Weight: 87.9 kg

DRUGS (1)
  1. REVLIMID [Suspect]
     Active Substance: LENALIDOMIDE
     Indication: Plasma cell myeloma
     Dosage: FREQUENCY : 14D ON,7D OFF
     Route: 048
     Dates: start: 20211129

REACTIONS (2)
  - Diarrhoea [Unknown]
  - Tremor [Unknown]

NARRATIVE: CASE EVENT DATE: 20211101
